FAERS Safety Report 5357300-0 (Version None)
Quarter: 2007Q2

REPORT INFORMATION
  Report Type: 
  Country: None (occurrence: None)
  Receive Date: 20070612
  Receipt Date: 20070612
  Transmission Date: 20071010
  Serious: No
  Sender: FDA-Public Use
  Company Number: None

PATIENT
  Age: 21 Year
  Sex: Female
  Weight: 63.5036 kg

DRUGS (1)
  1. NUVARING [Suspect]
     Indication: CONTRACEPTION
     Dosage: MONTHLY
     Dates: start: 20060401, end: 20060601

REACTIONS (9)
  - ABDOMINAL PAIN UPPER [None]
  - ANGER [None]
  - CONTRACEPTIVE DEVICE COMPLICATION [None]
  - DEPRESSION [None]
  - FATIGUE [None]
  - MASS [None]
  - MUSCLE SPASMS [None]
  - PAIN [None]
  - THROMBOSIS [None]
